FAERS Safety Report 5588044-8 (Version None)
Quarter: 2008Q1

REPORT INFORMATION
  Report Type: 
  Country: None (occurrence: None)
  Receive Date: 20080111
  Receipt Date: 20071228
  Transmission Date: 20080703
  Serious: Yes (Other)
  Sender: FDA-Public Use
  Company Number: US-PFIZER INC-2007099811

PATIENT
  Sex: Male
  Weight: 72.7 kg

DRUGS (1)
  1. CHANTIX [Suspect]
     Indication: SMOKING CESSATION THERAPY
     Route: 048
     Dates: start: 20071112, end: 20071114

REACTIONS (13)
  - ABNORMAL BEHAVIOUR [None]
  - ANGER [None]
  - DECREASED APPETITE [None]
  - FEELING ABNORMAL [None]
  - FORMICATION [None]
  - GAIT DISTURBANCE [None]
  - HYPOAESTHESIA [None]
  - IRRITABILITY [None]
  - JOINT INJURY [None]
  - MUSCLE SPASMS [None]
  - PERONEAL NERVE PALSY [None]
  - PRURITUS [None]
  - VOMITING [None]
